FAERS Safety Report 5380418-3 (Version None)
Quarter: 2007Q3

REPORT INFORMATION
  Report Type: 
  Country: None (occurrence: None)
  Receive Date: 20070706
  Receipt Date: 20070614
  Transmission Date: 20080115
  Serious: No
  Sender: FDA-Public Use
  Company Number: A0653155A

PATIENT
  Age: 67 Year
  Sex: Female

DRUGS (5)
  1. TYKERB [Suspect]
     Indication: BREAST CANCER
     Dosage: 250MG FOUR TIMES PER DAY
     Route: 048
     Dates: start: 20070528
  2. TAXOTERE [Concomitant]
  3. INDOCIN [Concomitant]
  4. LISINOPRIL [Concomitant]
  5. COREG [Concomitant]

REACTIONS (4)
  - BLISTER [None]
  - DIARRHOEA [None]
  - RASH [None]
  - RASH PRURITIC [None]
